FAERS Safety Report 8818922 (Version 2)
Quarter: 2013Q1

REPORT INFORMATION
  Report Type: Spontaneous
  Country: GB (occurrence: None)
  Receive Date: 20121002
  Receipt Date: 20121214
  Transmission Date: 20140127
  Serious: Yes (Other)
  Sender: FDA-Public Use
  Company Number: GB-GDP-12415120

PATIENT
  Age: 79 Year
  Sex: Female

DRUGS (15)
  1. METVIXIA [Suspect]
     Indication: BASAL CELL CARCINOMA
     Route: 061
     Dates: start: 20120828, end: 20120828
  2. LEVOTHYROXINE [Concomitant]
  3. BUCCASTEM [Concomitant]
  4. ATORVASTATIN [Concomitant]
  5. ESCITALOPRAM [Concomitant]
  6. OMEPRAZOLE [Concomitant]
  7. EPANUTIN /00017401/ ( TO UNKNOWN) [Concomitant]
  8. WARFARIN [Concomitant]
  9. AMLODIPINE [Concomitant]
  10. SOLIFENACIN [Concomitant]
  11. CHLORAMPHENICOL [Concomitant]
  12. VOLTAROL [Concomitant]
  13. MIDAZOLAM (TO UNKNOWN) [Concomitant]
  14. ALENDRONIC ACID (TO UNKNOWN) [Concomitant]
  15. TOPIRAMATE (TO UNKNOWN) [Concomitant]

REACTIONS (3)
  - Transient ischaemic attack [None]
  - Feeling cold [None]
  - Epilepsy [None]
